FAERS Safety Report 5905064-1 (Version None)
Quarter: 2008Q3

REPORT INFORMATION
  Report Type: 
  Country: None (occurrence: None)
  Receive Date: 20080909
  Receipt Date: 20080516
  Transmission Date: 20090109
  Serious: Yes (Hospitalization)
  Sender: FDA-Public Use
  Company Number: 163-20785-08051034

PATIENT
  Age: 48 Year
  Sex: Female

DRUGS (7)
  1. THALOMID [Suspect]
     Indication: MULTIPLE MYELOMA
     Dosage: 100 MG, 1 IN 1 D, ORAL
     Route: 048
     Dates: start: 20080308
  2. VELCADE [Suspect]
     Indication: MULTIPLE MYELOMA
  3. DEXAMETHASONE TAB [Suspect]
     Indication: MULTIPLE MYELOMA
  4. ADRIAMYCIN PFS [Suspect]
     Indication: MULTIPLE MYELOMA
  5. CISPLATIN [Suspect]
     Indication: MULTIPLE MYELOMA
  6. CYCLOPHOSPHAMIDE [Suspect]
     Indication: MULTIPLE MYELOMA
  7. ETOPOSIDE [Suspect]
     Indication: MULTIPLE MYELOMA

REACTIONS (1)
  - NEUTROPENIA [None]
